FAERS Safety Report 8954038 (Version 1)
Quarter: 2012Q4

REPORT INFORMATION
  Report Type: 
  Country: US (occurrence: US)
  Receive Date: 20121207
  Receipt Date: 20121207
  Transmission Date: 20130627
  Serious: Yes (Life-Threatening, Hospitalization, Other)
  Sender: FDA-Public Use
  Company Number: US-BRISTOL-MYERS SQUIBB COMPANY-17161928

PATIENT
  Sex: Male

DRUGS (3)
  1. REYATAZ [Suspect]
  2. TRUVADA [Suspect]
  3. NORVIR [Suspect]

REACTIONS (2)
  - Respiratory failure [Unknown]
  - Renal failure chronic [Unknown]
